FAERS Safety Report 5622543-5 (Version None)
Quarter: 2008Q1

REPORT INFORMATION
  Report Type: 
  Country: None (occurrence: None)
  Receive Date: 20080114
  Receipt Date: 20071024
  Transmission Date: 20080703
  Serious: Yes (Death)
  Sender: FDA-Public Use
  Company Number: A03200706246

PATIENT
  Age: 55 Year
  Sex: Female
  Weight: 77.1 kg

DRUGS (2)
  1. PLAVIX [Suspect]
     Indication: ARTERIAL CATHETERISATION
     Dosage: ORAL
     Route: 048
  2. EPOPROSTENOL SODIUM [Concomitant]

REACTIONS (3)
  - CONTUSION [None]
  - DYSPNOEA [None]
  - THROMBOTIC THROMBOCYTOPENIC PURPURA [None]
